FAERS Safety Report 4524954-8 (Version None)
Quarter: 2004Q4

REPORT INFORMATION
  Report Type: 
  Country: None (occurrence: None)
  Receive Date: 20041213
  Receipt Date: 20041026
  Transmission Date: 20050328
  Serious: Yes (Death, Congenital Anomaly, Other)
  Sender: FDA-Public Use
  Company Number: US-AMGEN-US096518

PATIENT

DRUGS (1)
  1. ENBREL [Suspect]
     Indication: RHEUMATOID ARTHRITIS

REACTIONS (7)
  - ABORTION SPONTANEOUS [None]
  - CARDIAC DISORDER [None]
  - DEATH [None]
  - DRUG EXPOSURE DURING PREGNANCY [None]
  - HEART DISEASE CONGENITAL [None]
  - LUNG DISORDER [None]
  - PULMONARY MALFORMATION [None]
